FAERS Safety Report 11589623 (Version 1)
Quarter: 2015Q4

REPORT INFORMATION
  Report Type: Spontaneous
  Country: US (occurrence: US)
  Receive Date: 20151002
  Receipt Date: 20151002
  Transmission Date: 20160304
  Serious: No
  Sender: FDA-Public Use
  Company Number: US-JNJFOC-20150906346

PATIENT
  Sex: Female
  Weight: 43.09 kg

DRUGS (4)
  1. TOPIRAMATE. [Suspect]
     Active Substance: TOPIRAMATE
     Indication: ANXIETY
     Route: 048
  2. JUNEL [Concomitant]
     Active Substance: ETHINYL ESTRADIOL\NORETHINDRONE ACETATE
     Indication: CONTRACEPTION
     Route: 065
  3. TOPIRAMATE. [Suspect]
     Active Substance: TOPIRAMATE
     Indication: ANXIETY
     Route: 048
     Dates: end: 201508
  4. TOPIRAMATE. [Suspect]
     Active Substance: TOPIRAMATE
     Indication: ANXIETY
     Route: 048

REACTIONS (15)
  - Antinuclear antibody positive [Not Recovered/Not Resolved]
  - Amenorrhoea [Not Recovered/Not Resolved]
  - Paraesthesia [Not Recovered/Not Resolved]
  - Hepatic enzyme increased [Not Recovered/Not Resolved]
  - Alopecia [Not Recovered/Not Resolved]
  - Pain of skin [Unknown]
  - Drug ineffective for unapproved indication [Unknown]
  - Abdominal pain upper [Unknown]
  - Arthralgia [Unknown]
  - Adverse drug reaction [Unknown]
  - Blood calcium increased [Not Recovered/Not Resolved]
  - Eye pain [Unknown]
  - Anxiety [Unknown]
  - Insomnia [Unknown]
  - Hormone level abnormal [Unknown]

NARRATIVE: CASE EVENT DATE: 2015
